FAERS Safety Report 16185450 (Version 1)
Quarter: 2019Q2

REPORT INFORMATION
  Report Type: Report from Study
  Country: US (occurrence: US)
  Receive Date: 20190411
  Receipt Date: 20190411
  Transmission Date: 20190711
  Serious: Yes (Other)
  Sender: FDA-Public Use
  Company Number: US-AMGEN-USASL2019055181

PATIENT
  Age: 70 Year
  Sex: Male
  Weight: 104.31 kg

DRUGS (2)
  1. BLINCYTO [Suspect]
     Active Substance: BLINATUMOMAB
     Indication: ACUTE LYMPHOCYTIC LEUKAEMIA RECURRENT
     Dosage: UNK
     Route: 065
  2. BLINCYTO [Suspect]
     Active Substance: BLINATUMOMAB
     Indication: MINIMAL RESIDUAL DISEASE

REACTIONS (14)
  - Hypoxia [Unknown]
  - Fatigue [Unknown]
  - Nausea [Unknown]
  - Infusion related reaction [Unknown]
  - Decreased appetite [Unknown]
  - Bone marrow failure [Unknown]
  - Mucosal inflammation [Unknown]
  - Vomiting [Unknown]
  - Cardiotoxicity [Unknown]
  - Insomnia [Unknown]
  - Diarrhoea [Unknown]
  - Infection [Unknown]
  - Haemorrhage [Unknown]
  - Pneumonia [Unknown]
